FAERS Safety Report 25953814 (Version 1)
Quarter: 2025Q4

REPORT INFORMATION
  Report Type: Spontaneous
  Country: EU (occurrence: EU)
  Receive Date: 20251023
  Receipt Date: 20251023
  Transmission Date: 20260118
  Serious: Yes (Death, Hospitalization)
  Sender: NOVARTIS
  Company Number: None

PATIENT
  Age: 70 Year
  Sex: Male
  Weight: 78 kg

DRUGS (2)
  1. EVEROLIMUS [Interacting]
     Active Substance: EVEROLIMUS
     Indication: Prophylaxis against transplant rejection
     Dosage: 0.75 MG, Q12H  (2916A)
     Route: 048
     Dates: start: 202403, end: 20250305
  2. PREDNISONE [Interacting]
     Active Substance: PREDNISONE
     Indication: Prophylaxis against transplant rejection
     Dosage: 5 MG, QD (886A)
     Route: 048
     Dates: start: 2021, end: 20250305

REACTIONS (1)
  - Pneumocystis jirovecii pneumonia [Fatal]

NARRATIVE: CASE EVENT DATE: 20250305
